FAERS Safety Report 24388758 (Version 1)
Quarter: 2024Q4

REPORT INFORMATION
  Report Type: Spontaneous
  Country: US (occurrence: None)
  Receive Date: 20241002
  Receipt Date: 20241002
  Transmission Date: 20250114
  Serious: Yes (Other)
  Sender: Public
  Company Number: None

PATIENT
  Age: 59 Year
  Sex: Female
  Weight: 83.25 kg

DRUGS (10)
  1. MOUNJARO [Suspect]
     Active Substance: TIRZEPATIDE
     Route: 058
     Dates: start: 20240809, end: 20240812
  2. ENTRESTO [Concomitant]
  3. METOPROLOL SUCCINATE [Concomitant]
     Active Substance: METOPROLOL SUCCINATE
  4. INSULIN NOS [Concomitant]
     Active Substance: INSULIN NOS
  5. ASPIRIN [Concomitant]
  6. DIGOXIN [Concomitant]
  7. B12 [Concomitant]
  8. MULTI VITAMIN [Concomitant]
  9. VITAMIN D [Concomitant]
     Active Substance: VITAMIN D NOS
  10. TYLENOL PM [Concomitant]
     Active Substance: ACETAMINOPHEN\DIPHENHYDRAMINE

REACTIONS (8)
  - Abdominal discomfort [None]
  - Vomiting [None]
  - Vertigo [None]
  - Asthenia [None]
  - Weight decreased [None]
  - Dizziness [None]
  - Loss of consciousness [None]
  - Gait disturbance [None]

NARRATIVE: CASE EVENT DATE: 20240817
